FAERS Safety Report 12196430 (Version 2)
Quarter: 2016Q1

REPORT INFORMATION
  Report Type: Spontaneous
  Country: US (occurrence: US)
  Receive Date: 20160321
  Receipt Date: 20160321
  Transmission Date: 20160526
  Serious: Yes (Other)
  Sender: FDA-Public Use
  Company Number: US-ALLERGAN-1519168US

PATIENT
  Age: 31 Year
  Sex: Male

DRUGS (1)
  1. OZURDEX [Suspect]
     Active Substance: DEXAMETHASONE
     Indication: RETINAL VASCULITIS
     Dosage: 0.7 MG, SINGLE
     Route: 031
     Dates: start: 20150914, end: 20150914

REACTIONS (2)
  - Endophthalmitis [Recovered/Resolved]
  - Off label use [Unknown]

NARRATIVE: CASE EVENT DATE: 20150917
